FAERS Safety Report 18237535 (Version 1)
Quarter: 2020Q3

REPORT INFORMATION
  Report Type: Spontaneous
  Country: US (occurrence: US)
  Receive Date: 20200907
  Receipt Date: 20200907
  Transmission Date: 20201103
  Serious: Yes (Hospitalization)
  Sender: FDA-Public Use
  Company Number: US-PFIZER INC-2020344192

PATIENT
  Age: 76 Year
  Sex: Male
  Weight: 142.88 kg

DRUGS (1)
  1. REVATIO [Suspect]
     Active Substance: SILDENAFIL CITRATE
     Indication: LUNG DISORDER
     Dosage: UNK, 3X/DAY [1/2 TABLET BY MOUTH THREE TIMES A DAY]
     Route: 048

REACTIONS (3)
  - Off label use [Unknown]
  - Liver disorder [Unknown]
  - Product use in unapproved indication [Unknown]
